FAERS Safety Report 14543597 (Version 1)
Quarter: 2018Q1

REPORT INFORMATION
  Report Type: Report from Study
  Country: US (occurrence: MX)
  Receive Date: 20180216
  Receipt Date: 20180216
  Transmission Date: 20180509
  Serious: Yes (Death)
  Sender: FDA-Public Use
  Company Number: US-SUNOVION-2018SUN000545

PATIENT
  Sex: Male

DRUGS (1)
  1. INDACATEROL AND GLYCOPYRROLATE [Suspect]
     Active Substance: GLYCOPYRROLATE\INDACATEROL MALEATE
     Indication: PULMONARY FIBROSIS
     Dosage: 2 DF, UNK (110 UG INDACATEROL, 50 UG GLYCOPYRRONIUM BROMIDE)
     Route: 055
     Dates: start: 201707

REACTIONS (3)
  - Drug prescribing error [Unknown]
  - Product use in unapproved indication [Unknown]
  - Lung disorder [Fatal]
